FAERS Safety Report 5626245-0 (Version None)
Quarter: 2008Q1

REPORT INFORMATION
  Report Type: 
  Country: None (occurrence: None)
  Receive Date: 20080214
  Receipt Date: 20080212
  Transmission Date: 20080703
  Serious: Yes (Hospitalization)
  Sender: FDA-Public Use
  Company Number: D0054975A

PATIENT
  Age: 80 Year
  Sex: Male
  Weight: 78 kg

DRUGS (5)
  1. ELONTRIL [Suspect]
     Indication: DEPRESSION
     Dosage: 150MG PER DAY
     Route: 048
     Dates: start: 20070801, end: 20070809
  2. MULTIPLE DRUGS [Concomitant]
     Route: 065
  3. MIRTAZAPINE [Concomitant]
     Dosage: 15MG PER DAY
     Route: 065
  4. SOLIAN [Concomitant]
     Dosage: 100MG PER DAY
     Route: 065
  5. DOMINAL [Concomitant]
     Dosage: 80MG PER DAY
     Route: 065

REACTIONS (6)
  - AGITATION [None]
  - CONFUSIONAL STATE [None]
  - DEHYDRATION [None]
  - DELIRIUM [None]
  - DISORIENTATION [None]
  - RESTLESSNESS [None]
